FAERS Safety Report 7530541-X (Version None)
Quarter: 2011Q2

REPORT INFORMATION
  Report Type: 
  Country: None (occurrence: None)
  Receive Date: 20110607
  Receipt Date: 20110523
  Transmission Date: 20111010
  Serious: Yes (Other)
  Sender: FDA-Public Use
  Company Number: US-WATSON-2011-07293

PATIENT
  Age: 44 Year
  Sex: Male

DRUGS (1)
  1. FLUOROURACIL [Suspect]
     Indication: ANOGENITAL DYSPLASIA
     Dosage: 0.25 G, QHS
     Route: 054

REACTIONS (1)
  - ANORECTAL DISCOMFORT [None]
